FAERS Safety Report 15798952 (Version 1)
Quarter: 2019Q1

REPORT INFORMATION
  Report Type: Spontaneous
  Country: US (occurrence: US)
  Receive Date: 20190108
  Receipt Date: 20190108
  Transmission Date: 20190417
  Serious: Yes (Hospitalization)
  Sender: FDA-Public Use
  Company Number: US-B.I. PHARMACEUTICALS,INC./RIDGEFIELD-2019-BI-000340

PATIENT
  Age: 64 Year
  Sex: Male

DRUGS (3)
  1. SPIRIVA [Suspect]
     Active Substance: TIOTROPIUM BROMIDE MONOHYDRATE
     Indication: CHRONIC OBSTRUCTIVE PULMONARY DISEASE
     Dosage: NR;  FORM STRENGTH: 18 MCG; FORMULATION: CAPSULE? ?ACTION(S) TAKEN WITH PRODUCT: DRUG WITHDRAWN
     Route: 055
     Dates: start: 20180401, end: 20180406
  2. LOSARTAN. [Concomitant]
     Active Substance: LOSARTAN
     Indication: HEART RATE INCREASED
     Dosage: QD;  FORM STRENGTH: 25MG
     Route: 048
     Dates: start: 2016
  3. SIMVASTATIN. [Concomitant]
     Active Substance: SIMVASTATIN
     Indication: BLOOD CHOLESTEROL INCREASED
     Dosage: QD;  FORM STRENGTH: 10MG
     Route: 048
     Dates: start: 2012

REACTIONS (3)
  - Fall [Recovered/Resolved]
  - Cardiac failure congestive [Not Recovered/Not Resolved]
  - Dysuria [Unknown]

NARRATIVE: CASE EVENT DATE: 201805
